FAERS Safety Report 21285047 (Version 8)
Quarter: 2022Q4

REPORT INFORMATION
  Report Type: Spontaneous
  Country: US (occurrence: US)
  Receive Date: 20220902
  Receipt Date: 20221209
  Transmission Date: 20230113
  Serious: Yes (Other)
  Sender: FDA-Public Use
  Company Number: US-UCBSA-2022051859

PATIENT
  Age: 0 Year
  Sex: Male
  Weight: 16 kg

DRUGS (4)
  1. FINTEPLA [Suspect]
     Active Substance: FENFLURAMINE
     Indication: Severe myoclonic epilepsy of infancy
     Dosage: 2.3 MILLILITER, 2X/DAY (BID) (2.2 MG/ML)
     Route: 048
     Dates: start: 20200904, end: 202211
  2. FINTEPLA [Suspect]
     Active Substance: FENFLURAMINE
     Dosage: 2.3 MILLILITER, 2X/DAY (BID)
     Route: 048
     Dates: end: 20221206
  3. LEVETIRACETAM [Suspect]
     Active Substance: LEVETIRACETAM
     Indication: Severe myoclonic epilepsy of infancy
     Dosage: 450 MILLIGRAM, 2X/DAY (BID)
     Route: 048
     Dates: start: 20190321
  4. CLOBAZAM [Concomitant]
     Active Substance: CLOBAZAM
     Indication: Severe myoclonic epilepsy of infancy

REACTIONS (3)
  - Pulmonary hypertension [Not Recovered/Not Resolved]
  - Tricuspid valve incompetence [Unknown]
  - Product use in unapproved indication [Unknown]

NARRATIVE: CASE EVENT DATE: 20190321
